FAERS Safety Report 4591430-6 (Version None)
Quarter: 2005Q1

REPORT INFORMATION
  Report Type: 
  Country: None (occurrence: None)
  Receive Date: 20050222
  Receipt Date: 20050214
  Transmission Date: 20050727
  Serious: No
  Sender: FDA-Public Use
  Company Number: 2005UW02500

PATIENT

DRUGS (1)
  1. DIPRIVAN [Suspect]
     Dosage: 10 MG/ML IV
     Route: 042

REACTIONS (3)
  - BRADYCARDIA [None]
  - HYPOTENSION [None]
  - METABOLIC ACIDOSIS [None]
